FAERS Safety Report 25106145 (Version 1)
Quarter: 2025Q1

REPORT INFORMATION
  Report Type: Spontaneous
  Country: PS (occurrence: None)
  Receive Date: 20250321
  Receipt Date: 20250321
  Transmission Date: 20250409
  Serious: Yes (Congenital Anomaly)
  Sender: ACS DOBFAR
  Company Number: PS-MLMSERVICE-20250311-PI441660-00222-1

PATIENT
  Sex: Female

DRUGS (3)
  1. METRONIDAZOLE [Suspect]
     Active Substance: METRONIDAZOLE
     Route: 064
  2. CEFTRIAXONE [Suspect]
     Active Substance: CEFTRIAXONE
     Route: 064
  3. GLYCERIN [Suspect]
     Active Substance: GLYCERIN
     Route: 064

REACTIONS (3)
  - Fibula agenesis [Unknown]
  - Spina bifida occulta [Unknown]
  - Maternal drugs affecting foetus [Unknown]
